FAERS Safety Report 16083143 (Version 1)
Quarter: 2019Q1

REPORT INFORMATION
  Report Type: Spontaneous
  Country: US (occurrence: US)
  Receive Date: 20190318
  Receipt Date: 20190318
  Transmission Date: 20190418
  Serious: No
  Sender: FDA-Public Use
  Company Number: US-ELI_LILLY_AND_COMPANY-US201903001897

PATIENT
  Sex: Female

DRUGS (3)
  1. HUMAN INSULIN [Suspect]
     Active Substance: INSULIN HUMAN
     Indication: TYPE 1 DIABETES MELLITUS
     Dosage: 10 IU, UNKNOWN
     Route: 065
  2. HUMAN INSULIN [Suspect]
     Active Substance: INSULIN HUMAN
     Dosage: UNK UNK, UNKNOWN
     Route: 065
     Dates: start: 20190305
  3. HUMAN INSULIN [Suspect]
     Active Substance: INSULIN HUMAN
     Dosage: 400 IU, UNKNOWN
     Route: 065
     Dates: end: 201902

REACTIONS (2)
  - Blood glucose increased [Unknown]
  - Weight increased [Unknown]
